FAERS Safety Report 12366122 (Version 1)
Quarter: 2016Q2

REPORT INFORMATION
  Report Type: Spontaneous
  Country: FR (occurrence: FR)
  Receive Date: 20160513
  Receipt Date: 20160513
  Transmission Date: 20160815
  Serious: Yes (Hospitalization)
  Sender: FDA-Public Use
  Company Number: FR-ROCHE-1756509

PATIENT
  Age: 91 Year
  Sex: Female

DRUGS (10)
  1. VERATRAN [Concomitant]
     Active Substance: CLOTIAZEPAM
     Dosage: LONG-TERM TREATMENT
     Route: 048
  2. ROCEPHINE [Suspect]
     Active Substance: CEFTRIAXONE SODIUM
     Indication: LUNG INFECTION
     Route: 042
     Dates: start: 20160119, end: 20160203
  3. HALDOL FAIBLE [Concomitant]
     Dosage: LONG-TERM TREATMENT
     Route: 048
  4. LASILIX FAIBLE [Concomitant]
     Active Substance: FUROSEMIDE
     Dosage: LONG-TERM TREATMENT
     Route: 048
  5. ISOPTINE [Concomitant]
     Active Substance: VERAPAMIL HYDROCHLORIDE
     Dosage: LONG-TERM TREATMENT
     Route: 048
  6. EFFEXOR [Concomitant]
     Active Substance: VENLAFAXINE HYDROCHLORIDE
     Dosage: LONG-TERM TREATMENT
     Route: 048
  7. PERINDOPRIL [Concomitant]
     Active Substance: PERINDOPRIL
     Dosage: LONG-TERM TREATMENT
     Route: 048
  8. TAVANIC [Suspect]
     Active Substance: LEVOFLOXACIN
     Indication: LUNG INFECTION
     Route: 042
     Dates: start: 20160119, end: 20160203
  9. PREVISCAN (FRANCE) [Concomitant]
     Active Substance: FLUINDIONE
     Dosage: LONG-TERM TREATMENT
     Route: 048
  10. BISOPROLOL [Concomitant]
     Active Substance: BISOPROLOL
     Route: 048

REACTIONS (1)
  - Clostridium difficile colitis [Recovered/Resolved]

NARRATIVE: CASE EVENT DATE: 20160203
